FAERS Safety Report 7405010-8 (Version None)
Quarter: 2011Q2

REPORT INFORMATION
  Report Type: 
  Country: None (occurrence: None)
  Receive Date: 20110411
  Receipt Date: 20110401
  Transmission Date: 20111010
  Serious: Yes (Death, Hospitalization)
  Sender: FDA-Public Use
  Company Number: JP-JNJFOC-20110207408

PATIENT
  Age: 36 Year
  Sex: Female
  Weight: 49 kg

DRUGS (8)
  1. RISPERDAL CONSTA [Suspect]
     Route: 030
  2. AKINETON [Suspect]
     Indication: SCHIZOPHRENIA
     Route: 048
  3. BENZALIN [Suspect]
     Indication: SCHIZOPHRENIA
     Route: 048
  4. RISPERDAL CONSTA [Suspect]
     Indication: SCHIZOPHRENIA
     Route: 030
  5. HALCION [Suspect]
     Indication: SCHIZOPHRENIA
     Route: 048
  6. RISPERDAL CONSTA [Suspect]
     Route: 030
  7. DEPAKENE [Suspect]
     Indication: SCHIZOPHRENIA
     Route: 048
  8. LAXOBERON [Concomitant]
     Route: 048

REACTIONS (8)
  - VOMITING [None]
  - CONDITION AGGRAVATED [None]
  - SLEEP DISORDER [None]
  - HYPERPHAGIA [None]
  - CARDIAC FAILURE [None]
  - TOOTHACHE [None]
  - ABNORMAL BEHAVIOUR [None]
  - FATIGUE [None]
